FAERS Safety Report 6301725-3 (Version None)
Quarter: 2009Q3

REPORT INFORMATION
  Report Type: 
  Country: None (occurrence: None)
  Receive Date: 20090805
  Receipt Date: 20090721
  Transmission Date: 20100115
  Serious: Yes (Other)
  Sender: FDA-Public Use
  Company Number: 8049551

PATIENT

DRUGS (1)
  1. METHYLPHENIDATE HCL [Suspect]
     Dosage: 100 MG

REACTIONS (6)
  - ANXIETY [None]
  - DYSPNOEA [None]
  - HEADACHE [None]
  - INSOMNIA [None]
  - LOGORRHOEA [None]
  - TIC [None]
